FAERS Safety Report 8056530-7 (Version None)
Quarter: 2012Q1

REPORT INFORMATION
  Report Type: 
  Country: None (occurrence: None)
  Receive Date: 20120119
  Receipt Date: 20120116
  Transmission Date: 20120608
  Serious: Yes (Other)
  Sender: FDA-Public Use
  Company Number: US-PFIZER INC-2012013080

PATIENT
  Age: 50 Year
  Sex: Female

DRUGS (1)
  1. KETOROLAC TROMETHAMINE [Suspect]
     Dosage: 60 MG, UNK
     Route: 030

REACTIONS (2)
  - PURPURA FULMINANS [None]
  - DISSEMINATED INTRAVASCULAR COAGULATION [None]
